FAERS Safety Report 13000995 (Version 2)
Quarter: 2016Q4

REPORT INFORMATION
  Report Type: Spontaneous
  Country: AT (occurrence: AT)
  Receive Date: 20161206
  Receipt Date: 20161214
  Transmission Date: 20170207
  Serious: Yes (Death, Hospitalization, Other)
  Sender: FDA-Public Use
  Company Number: AT-009507513-1611AUT004914

PATIENT
  Age: 60 Year
  Sex: Male
  Weight: 62 kg

DRUGS (1)
  1. KEYTRUDA [Suspect]
     Active Substance: PEMBROLIZUMAB
     Indication: GLIOBLASTOMA
     Dosage: 2 MG/KG, Q3W
     Route: 042
     Dates: start: 20161104, end: 201611

REACTIONS (12)
  - Hypertension [Fatal]
  - Mass [Fatal]
  - Oedema [Fatal]
  - Pyrexia [Fatal]
  - Cerebral disorder [Fatal]
  - Cerebral disorder [Unknown]
  - Agitation [Unknown]
  - Pulmonary oedema [Fatal]
  - Malignant neoplasm progression [Unknown]
  - Mass [Unknown]
  - Off label use [Unknown]
  - Muscle spasms [Fatal]

NARRATIVE: CASE EVENT DATE: 201611
